FAERS Safety Report 8464073-1 (Version None)
Quarter: 2012Q2

REPORT INFORMATION
  Report Type: 
  Country: None (occurrence: None)
  Receive Date: 20120323
  Receipt Date: 20111108
  Transmission Date: 20120825
  Serious: Yes (Hospitalization)
  Sender: FDA-Public Use
  Company Number: 163-21880-11101085

PATIENT
  Age: 53 Year
  Sex: Female
  Weight: 81.1939 kg

DRUGS (1)
  1. REVLIMID [Suspect]
     Indication: MULTIPLE MYELOMA
     Dosage: 25 MG, DAILY, FOR 21 DAYS, PO
     Route: 048
     Dates: start: 20110912, end: 20110101

REACTIONS (3)
  - BRONCHITIS [None]
  - FATIGUE [None]
  - RASH [None]
